FAERS Safety Report 8603997-9 (Version None)
Quarter: 2012Q3

REPORT INFORMATION
  Report Type: 
  Country: None (occurrence: None)
  Receive Date: 20120820
  Receipt Date: 20120810
  Transmission Date: 20120928
  Serious: No
  Sender: FDA-Public Use
  Company Number: US-BIOGENIDEC-2012BI022799

PATIENT
  Sex: Male

DRUGS (1)
  1. TYSABRI [Suspect]
     Indication: MULTIPLE SCLEROSIS
     Route: 042
     Dates: start: 20090327

REACTIONS (4)
  - HYPOAESTHESIA [None]
  - MUSCULOSKELETAL DISORDER [None]
  - VISUAL ACUITY REDUCED [None]
  - LOSS OF CONTROL OF LEGS [None]
